FAERS Safety Report 25541638 (Version 2)
Quarter: 2025Q3

REPORT INFORMATION
  Report Type: Spontaneous
  Country: JP (occurrence: JP)
  Receive Date: 20250711
  Receipt Date: 20250723
  Transmission Date: 20251020
  Serious: Yes (Hospitalization, Other)
  Sender: SPECGX
  Company Number: JP-SPECGX-T202501208

PATIENT
  Age: 7 Decade
  Sex: Male

DRUGS (10)
  1. METHADONE [Suspect]
     Active Substance: METHADONE HYDROCHLORIDE
     Indication: Cancer pain
     Route: 048
  2. FLUOROURACIL\IRINOTECAN\LEUCOVORIN\OXALIPLATIN [Suspect]
     Active Substance: FLUOROURACIL\IRINOTECAN\LEUCOVORIN\OXALIPLATIN
     Indication: Pancreatic carcinoma
     Route: 065
  3. FLUOROURACIL\IRINOTECAN\LEUCOVORIN\OXALIPLATIN [Suspect]
     Active Substance: FLUOROURACIL\IRINOTECAN\LEUCOVORIN\OXALIPLATIN
     Indication: Metastases to liver
  4. OXYCODONE [Suspect]
     Active Substance: OXYCODONE
     Indication: Back pain
     Route: 065
  5. OXYCODONE [Suspect]
     Active Substance: OXYCODONE
     Indication: Abdominal pain
  6. PREGABALIN [Suspect]
     Active Substance: PREGABALIN
     Indication: Back pain
     Route: 065
  7. PREGABALIN [Suspect]
     Active Substance: PREGABALIN
     Indication: Abdominal pain
  8. MORPHINE HYDROCHLORIDE [Suspect]
     Active Substance: MORPHINE HYDROCHLORIDE
     Indication: Cancer pain
     Route: 008
  9. SODIUM CHLORIDE [Suspect]
     Active Substance: SODIUM CHLORIDE
     Indication: Cancer pain
     Route: 008
  10. LEVOBUPIVACAINE HYDROCHLORIDE [Suspect]
     Active Substance: LEVOBUPIVACAINE HYDROCHLORIDE
     Indication: Cancer pain
     Route: 008

REACTIONS (2)
  - Delirium [Unknown]
  - Drug ineffective [Unknown]
